FAERS Safety Report 12091898 (Version 1)
Quarter: 2016Q1

REPORT INFORMATION
  Report Type: Spontaneous
  Country: US (occurrence: US)
  Receive Date: 20160219
  Receipt Date: 20160219
  Transmission Date: 20160526
  Serious: Yes (Other)
  Sender: FDA-Public Use
  Company Number: US-ROCHE-1710981

PATIENT
  Sex: Female

DRUGS (1)
  1. TAMIFLU [Suspect]
     Active Substance: OSELTAMIVIR PHOSPHATE
     Indication: INFLUENZA
     Route: 065

REACTIONS (10)
  - Masked facies [Unknown]
  - Screaming [Unknown]
  - Aggression [Unknown]
  - Body temperature increased [Unknown]
  - Depression [Unknown]
  - Hallucination [Unknown]
  - Self injurious behaviour [Unknown]
  - Crying [Unknown]
  - Sleep terror [Unknown]
  - Hydrophobia [Unknown]
